FAERS Safety Report 4571640-4 (Version None)
Quarter: 2005Q1

REPORT INFORMATION
  Report Type: 
  Country: None (occurrence: None)
  Receive Date: 20050203
  Receipt Date: 20050203
  Transmission Date: 20050727
  Serious: Yes (Life-Threatening)
  Sender: FDA-Public Use
  Company Number: None

PATIENT
  Sex: Male
  Weight: 81.6475 kg

DRUGS (6)
  1. DILANTIN [Suspect]
     Indication: CONVULSION
     Dosage: 100 MG 1-AM, 1 PM, 2 HS
  2. DILANTIN [Suspect]
     Dosage: 30 MG 1-AM
  3. KEPPRA [Concomitant]
  4. DEPAKOTE [Concomitant]
  5. .. [Concomitant]
  6. LAMICTAL [Concomitant]

REACTIONS (3)
  - BRAIN LOBECTOMY [None]
  - CONVULSION [None]
  - VAGUS NERVE DISORDER [None]
